FAERS Safety Report 17497125 (Version 1)
Quarter: 2020Q1

REPORT INFORMATION
  Report Type: Spontaneous
  Country: US (occurrence: US)
  Receive Date: 20200304
  Receipt Date: 20200304
  Transmission Date: 20200409
  Serious: Yes (Other)
  Sender: FDA-Public Use
  Company Number: None

PATIENT
  Age: 75 Year
  Sex: Female
  Weight: 63.63 kg

DRUGS (14)
  1. CLARITIN [Concomitant]
     Active Substance: LORATADINE
  2. LORAZEPAM. [Concomitant]
     Active Substance: LORAZEPAM
  3. VITAMIN D [Concomitant]
     Active Substance: VITAMIN D NOS
  4. IBUPROFEN. [Concomitant]
     Active Substance: IBUPROFEN
  5. MULTIVITAMIN [Concomitant]
     Active Substance: VITAMINS
  6. OMEPRAZOLE. [Concomitant]
     Active Substance: OMEPRAZOLE
  7. OXYCODONE [Concomitant]
     Active Substance: OXYCODONE
  8. FASLODEX [Concomitant]
     Active Substance: FULVESTRANT
  9. SPIRONOLACTONE. [Concomitant]
     Active Substance: SPIRONOLACTONE
  10. ZOMETA [Concomitant]
     Active Substance: ZOLEDRONIC ACID
  11. PIQRAY [Suspect]
     Active Substance: ALPELISIB
     Indication: BREAST CANCER STAGE IV
     Route: 048
     Dates: start: 20200205, end: 20200218
  12. VITAMIN C [Concomitant]
     Active Substance: ASCORBIC ACID
  13. BUMETANIDE. [Concomitant]
     Active Substance: BUMETANIDE
  14. LEVOTHYROXINE. [Concomitant]
     Active Substance: LEVOTHYROXINE

REACTIONS (2)
  - Skin reaction [None]
  - Stomatitis [None]

NARRATIVE: CASE EVENT DATE: 20200218
